FAERS Safety Report 9890686 (Version 2)
Quarter: 2014Q1

REPORT INFORMATION
  Report Type: Spontaneous
  Country: DE (occurrence: None)
  Receive Date: 20140210
  Receipt Date: 20140219
  Transmission Date: 20141002
  Serious: Yes (Life-Threatening)
  Sender: FDA-Public Use
  Company Number: AUR-APL-2014-01326

PATIENT
  Age: 81 Year
  Sex: Male

DRUGS (12)
  1. METFORMIN [Suspect]
     Indication: TYPE 2 DIABETES MELLITUS
     Route: 048
     Dates: end: 20140120
  2. RAMIPRIL [Suspect]
     Indication: HYPERTENSION
     Route: 048
     Dates: end: 20140120
  3. XELEVIA [Suspect]
     Indication: TYPE 2 DIABETES MELLITUS
     Route: 048
     Dates: end: 20140120
  4. TOREM [Suspect]
     Indication: HYPERTENSION
     Route: 048
     Dates: end: 20140120
  5. HCT (HYDROCHLOROTHIAZIDE) [Concomitant]
  6. FOLSAN (FOLIC ACID) [Concomitant]
  7. METOHEXAL (METOPROLOL TARTRATE) [Concomitant]
  8. KALINOR (POTASSIUM CHLORIDE) [Concomitant]
  9. SIMVASTATIN (SIMVASTATIN) [Concomitant]
  10. PROSTAGUTT FORTE (PROSTAKAN FORTE) [Concomitant]
  11. ASS  (ACETYLSALICYLIC ACID) [Concomitant]
  12. NOVALGIN (NOVO-PETRIN) [Concomitant]

REACTIONS (4)
  - Lactic acidosis [None]
  - Hypoglycaemia [None]
  - Renal failure acute [None]
  - Haemoglobin decreased [None]
